FAERS Safety Report 8189120-6 (Version None)
Quarter: 2012Q1

REPORT INFORMATION
  Report Type: 
  Country: None (occurrence: None)
  Receive Date: 20120307
  Receipt Date: 20120223
  Transmission Date: 20120608
  Serious: Yes (Other)
  Sender: FDA-Public Use
  Company Number: TR-AMGEN-TURSP2012012509

PATIENT
  Age: 58 Year
  Sex: Female

DRUGS (1)
  1. ENBREL [Suspect]
     Indication: RHEUMATOID ARTHRITIS
     Dosage: 50 MG, WEEKLY
     Route: 058
     Dates: start: 20080215, end: 20111210

REACTIONS (6)
  - ASTHENIA [None]
  - FEELING ABNORMAL [None]
  - PHLEBITIS INFECTIVE [None]
  - VERTIGO [None]
  - ANAEMIA [None]
  - URINARY TRACT INFECTION [None]
